FAERS Safety Report 13841574 (Version 1)
Quarter: 2017Q3

REPORT INFORMATION
  Report Type: Spontaneous
  Country: US (occurrence: US)
  Receive Date: 20170807
  Receipt Date: 20170807
  Transmission Date: 20171127
  Serious: No
  Sender: FDA-Public Use
  Company Number: US-GALDERMA-US16007561

PATIENT
  Sex: Male

DRUGS (11)
  1. DIFFERIN [Suspect]
     Active Substance: ADAPALENE
     Indication: HAEMORRHAGE
     Dosage: 0.3%
     Route: 061
     Dates: start: 20160920
  2. XANAX [Concomitant]
     Active Substance: ALPRAZOLAM
     Indication: INSOMNIA
     Dosage: 1-2 MG
     Route: 048
  3. SOFT SOAP ORIGINAL [Concomitant]
     Indication: THERAPEUTIC SKIN CARE TOPICAL
     Route: 061
     Dates: start: 19940601
  4. UNKNOWN SPF 90 OR 95 [Concomitant]
     Indication: PROPHYLAXIS AGAINST SOLAR RADIATION
  5. ANTIHISTAMINE [Concomitant]
     Active Substance: ANTIHISTAMINES NOS
     Indication: HYPERSENSITIVITY
     Route: 048
  6. DIFFERIN [Suspect]
     Active Substance: ADAPALENE
     Indication: ACNE
     Dosage: 0.3%
     Route: 061
     Dates: start: 2008, end: 2008
  7. DIFFERIN [Suspect]
     Active Substance: ADAPALENE
     Indication: INGROWN HAIR
     Dosage: 0.3%
     Route: 061
  8. AZELASTINE [Concomitant]
     Active Substance: AZELASTINE
     Indication: MULTIPLE ALLERGIES
     Dosage: 1-2 SPRAYS
     Route: 045
     Dates: start: 20160916
  9. ALBUTEROL. [Concomitant]
     Active Substance: ALBUTEROL
     Indication: WHEEZING
     Dosage: 1-2 PUFFS EVERY 4 HOURS
     Dates: start: 20160916
  10. CARISOPRODOL. [Concomitant]
     Active Substance: CARISOPRODOL
     Dosage: 1-2 TABLETS
     Route: 048
  11. CHOLECALCIFEROL [Concomitant]
     Active Substance: CHOLECALCIFEROL
     Dosage: 2000 UNIT TABLET
     Route: 048
     Dates: start: 20161104

REACTIONS (7)
  - Pain of skin [Recovered/Resolved]
  - Erythema [Recovered/Resolved]
  - Product use in unapproved indication [Recovered/Resolved]
  - Skin burning sensation [Recovered/Resolved]
  - Paraesthesia [Recovered/Resolved]
  - Skin irritation [Recovered/Resolved]
  - Rash erythematous [Recovered/Resolved]

NARRATIVE: CASE EVENT DATE: 2008
